FAERS Safety Report 9716275 (Version 1)
Quarter: 2013Q4

REPORT INFORMATION
  Report Type: Spontaneous
  Country: US (occurrence: None)
  Receive Date: 20131126
  Receipt Date: 20131126
  Transmission Date: 20140711
  Serious: Yes (Hospitalization)
  Sender: FDA-Public Use
  Company Number: None

PATIENT
  Age: 81 Year
  Sex: Male
  Weight: 95.3 kg

DRUGS (4)
  1. CYCLOBENZAPRINE [Suspect]
     Indication: PAIN
     Route: 048
     Dates: start: 20131107, end: 20131120
  2. CYCLOBENZAPRINE [Suspect]
     Indication: BACK PAIN
     Route: 048
     Dates: start: 20131107, end: 20131120
  3. TRAMADOL [Suspect]
     Indication: PAIN
     Route: 048
     Dates: start: 20131107, end: 20131120
  4. TRAMADOL [Suspect]
     Indication: BACK PAIN
     Route: 048
     Dates: start: 20131107, end: 20131120

REACTIONS (4)
  - Mental status changes [None]
  - Delirium [None]
  - Fall [None]
  - Coordination abnormal [None]
